FAERS Safety Report 8818491 (Version 2)
Quarter: 2012Q4

REPORT INFORMATION
  Report Type: 
  Country: NL (occurrence: NL)
  Receive Date: 20121001
  Receipt Date: 20121127
  Transmission Date: 20130627
  Serious: Yes (Hospitalization)
  Sender: FDA-Public Use
  Company Number: NL-ROCHE-1138910

PATIENT
  Sex: Female
  Weight: 80 kg

DRUGS (7)
  1. XOLAIR [Suspect]
     Indication: ASTHMA
     Route: 065
     Dates: start: 20110324
  2. FOSTER [Concomitant]
     Dosage: inhaler, 3 dose
     Route: 065
  3. BERODUAL [Concomitant]
     Dosage: inhalation, 4 dose
     Route: 065
  4. XYZAL [Concomitant]
     Dosage: 1 dose
     Route: 065
  5. SINGULAIR [Concomitant]
     Dosage: 1 dose
     Route: 065
  6. AVAMYS [Concomitant]
     Dosage: nasal spray, 2 dose
     Route: 065
  7. EPIPEN [Concomitant]

REACTIONS (3)
  - Chest discomfort [Recovered/Resolved with Sequelae]
  - Psoriasis [Recovering/Resolving]
  - Osteitis [Recovered/Resolved]
